FAERS Safety Report 9641756 (Version 1)
Quarter: 2013Q4

REPORT INFORMATION
  Report Type: Spontaneous
  Country: US (occurrence: US)
  Receive Date: 20131023
  Receipt Date: 20131023
  Transmission Date: 20140711
  Serious: No
  Sender: FDA-Public Use
  Company Number: US-BAYER-2013-124982

PATIENT
  Age: 58 Year
  Sex: Female

DRUGS (1)
  1. NEXAVAR [Suspect]
     Indication: OSTEOSARCOMA
     Dosage: 400 MG, BID
     Dates: start: 201310

REACTIONS (3)
  - Alopecia [None]
  - Diarrhoea [None]
  - Off label use [None]
